APPROVED DRUG PRODUCT: NASALCROM
Active Ingredient: CROMOLYN SODIUM
Strength: 5.2MG/SPRAY **Federal Register determination that product was not discontinued or withdrawn for safety or effectiveness reasons**
Dosage Form/Route: SPRAY, METERED;NASAL
Application: N020463 | Product #001
Applicant: BLACKSMITH BRANDS INC
Approved: Jan 3, 1997 | RLD: Yes | RS: No | Type: DISCN